FAERS Safety Report 8248147-6 (Version None)
Quarter: 2012Q1

REPORT INFORMATION
  Report Type: 
  Country: None (occurrence: None)
  Receive Date: 20120330
  Receipt Date: 20120328
  Transmission Date: 20120608
  Serious: Yes (Death, Hospitalization, Other)
  Sender: FDA-Public Use
  Company Number: MX-ROCHE-759220

PATIENT
  Sex: Female
  Weight: 63 kg

DRUGS (14)
  1. XELODA [Suspect]
     Route: 048
     Dates: start: 20101129, end: 20101201
  2. ANALGESIC NOS [Concomitant]
     Dates: start: 20101113, end: 20101126
  3. AMBROSOL [Concomitant]
     Dates: start: 20101018, end: 20101202
  4. SENNA [Concomitant]
     Dates: start: 20101129, end: 20101201
  5. XELODA [Suspect]
     Indication: BREAST CANCER
     Dosage: DATE OF LAST DOSE: 21 NOV 2011. FILM COATED TABLET, D1 TO D14 EVERY THREE WEEKS
     Route: 048
     Dates: start: 20101117, end: 20101122
  6. VINFLUNINE [Suspect]
     Indication: BREAST CANCER
     Dosage: DATE OF LAST DOSE: 17 NOV 2010. UNIT: 280 MG/M2, CYCLICALSOLUTION FOR INJECTION, FROM D1 TO D14
     Route: 042
     Dates: start: 20101117, end: 20101117
  7. BETAMETHASONE [Concomitant]
     Route: 055
     Dates: start: 20101013, end: 20101125
  8. RANITIDINE [Concomitant]
     Dates: start: 20101102, end: 20101103
  9. ANALGESIC NOS [Concomitant]
     Dates: start: 20101013, end: 20101126
  10. SENNA [Concomitant]
  11. LAXATIVE NOS [Concomitant]
     Dates: start: 20101117, end: 20101122
  12. BECLOMETHASONE DIPROPIONATE [Concomitant]
     Dates: start: 20101113, end: 20101125
  13. TYLEX (MEXICO) [Concomitant]
     Dates: start: 20101013, end: 20101125
  14. ALBUTEROL [Concomitant]

REACTIONS (4)
  - LEUKOCYTOSIS [None]
  - LOWER RESPIRATORY TRACT INFECTION [None]
  - NEOPLASM MALIGNANT [None]
  - HAEMOGLOBIN DECREASED [None]
